FAERS Safety Report 18422196 (Version 2)
Quarter: 2021Q1

REPORT INFORMATION
  Report Type: Spontaneous
  Country: SE (occurrence: SE)
  Receive Date: 20201023
  Receipt Date: 20210106
  Transmission Date: 20210419
  Serious: Yes (Death)
  Sender: FDA-Public Use
  Company Number: SE-PFIZER INC-2020412227

PATIENT
  Age: 74 Year
  Sex: Female

DRUGS (14)
  1. SALAZOPYRIN EN [Suspect]
     Active Substance: SULFASALAZINE
     Indication: RHEUMATOID ARTHRITIS
     Dosage: 2000 MG, DAILY
     Route: 048
     Dates: start: 20200729, end: 20200910
  2. ABASAGLAR [Concomitant]
     Active Substance: INSULIN GLARGINE
     Dosage: 16+10 UNITS
     Dates: start: 20200313, end: 202009
  3. METFORMIN ACTAVIS [Concomitant]
     Active Substance: METFORMIN HYDROCHLORIDE
     Dosage: 1000 MG, DAILY
     Dates: start: 20131214, end: 202009
  4. JANUVIA [Concomitant]
     Active Substance: SITAGLIPTIN PHOSPHATE
     Dosage: 50 MG, DAILY
     Dates: start: 20180627, end: 202009
  5. LOSARSTAD [Concomitant]
     Dosage: 100 MG, ALTERNATE DAY
     Dates: start: 20131204, end: 202009
  6. ALVEDON [Concomitant]
     Active Substance: ACETAMINOPHEN
     Dosage: 1?2 TABLETS, 1?3 TIMES DAILY AS NEEDED
     Dates: start: 20150605, end: 202009
  7. NOVORAPID [Concomitant]
     Active Substance: INSULIN ASPART
     Dosage: 4 UNITS AS NEEDED
     Dates: start: 20200708, end: 202009
  8. LEVAXIN [Concomitant]
     Active Substance: LEVOTHYROXINE SODIUM
     Dosage: 50 UG, DAILY
     Dates: start: 20131204, end: 202009
  9. LOSARSTAD [Concomitant]
     Dosage: 50 MG, ALTERNATE DAY
     Dates: start: 20131204, end: 202009
  10. PLAQUENIL [Suspect]
     Active Substance: HYDROXYCHLOROQUINE SULFATE
     Indication: RHEUMATOID ARTHRITIS
     Dosage: 200 MG, DAILY
     Dates: start: 20191119, end: 202009
  11. ALENDRONAT ORIFARM [Concomitant]
     Active Substance: ALENDRONATE SODIUM
     Dosage: 1 DF, WEEKLY
     Dates: start: 20200109, end: 202009
  12. OMEPRAZOL PENSA [OMEPRAZOLE] [Concomitant]
     Dosage: UNK UNK, AS NEEDED
     Dates: start: 20140121, end: 202009
  13. METOPROLOL. [Concomitant]
     Active Substance: METOPROLOL
     Dosage: 50 MG, DAILY
     Dates: start: 20131204, end: 202009
  14. SIMVASTATIN BLUEFISH [Concomitant]
     Active Substance: SIMVASTATIN
     Dosage: 20 MG, DAILY
     Dates: start: 20131204, end: 202009

REACTIONS (1)
  - Neutropenia [Fatal]

NARRATIVE: CASE EVENT DATE: 20200910
